FAERS Safety Report 7677926-9 (Version None)
Quarter: 2011Q3

REPORT INFORMATION
  Report Type: 
  Country: None (occurrence: None)
  Receive Date: 20110808
  Receipt Date: 20110722
  Transmission Date: 20111222
  Serious: Yes (Disabling, Other)
  Sender: FDA-Public Use
  Company Number: 2011MA009838

PATIENT
  Sex: Female

DRUGS (2)
  1. METOCLOPRAMIDE [Suspect]
     Indication: ABDOMINAL DISTENSION
  2. METOCLOPRAMIDE [Suspect]
     Indication: DYSPEPSIA

REACTIONS (17)
  - ANXIETY [None]
  - QUALITY OF LIFE DECREASED [None]
  - ECONOMIC PROBLEM [None]
  - INCORRECT DRUG ADMINISTRATION DURATION [None]
  - ABDOMINAL DISTENSION [None]
  - DEFORMITY [None]
  - PAIN [None]
  - EXTRAPYRAMIDAL DISORDER [None]
  - TARDIVE DYSKINESIA [None]
  - UNEVALUABLE EVENT [None]
  - NERVOUS SYSTEM DISORDER [None]
  - FEAR [None]
  - FAMILY STRESS [None]
  - EMOTIONAL DISTRESS [None]
  - DYSPEPSIA [None]
  - ANHEDONIA [None]
  - DYSTONIA [None]
